FAERS Safety Report 4514612-8 (Version None)
Quarter: 2004Q3

REPORT INFORMATION
  Report Type: 
  Country: None (occurrence: None)
  Receive Date: 20040927
  Receipt Date: 20040318
  Transmission Date: 20050211
  Serious: No
  Sender: FDA-Public Use
  Company Number: US069764

PATIENT
  Age: 23 Year
  Sex: Female
  Weight: 74.1 kg

DRUGS (6)
  1. NEULASTA [Suspect]
     Indication: CHEMOTHERAPY
     Dosage: 6 MG
     Dates: start: 20040115
  2. CYCLOPHOSPHAMIDE [Concomitant]
  3. DOXORUBICIN HCL [Concomitant]
  4. VINCRISTINE SULFATE [Concomitant]
  5. PREDNISONE [Concomitant]
  6. RITUXIMAB [Concomitant]

REACTIONS (1)
  - AUTOIMMUNE NEUTROPENIA [None]
